FAERS Safety Report 14558362 (Version 1)
Quarter: 2018Q1

REPORT INFORMATION
  Report Type: Spontaneous
  Country: US (occurrence: US)
  Receive Date: 20180221
  Receipt Date: 20180221
  Transmission Date: 20180509
  Serious: No
  Sender: FDA-Public Use
  Company Number: US-PERRIGO-17US025089

PATIENT
  Age: 61 Year
  Sex: Female
  Weight: 71.2 kg

DRUGS (2)
  1. LOPERAMIDE HYDROCHLORIDE. [Suspect]
     Active Substance: LOPERAMIDE HYDROCHLORIDE
     Indication: DIARRHOEA
     Dosage: 4 MG AFTER THE 1ST LOOSE STOOL, 2 MG AFTER UP TO 2 SUBSEQUENT LOOST STOOLS, PRN
     Route: 048
     Dates: start: 201704, end: 201704
  2. LOPERAMIDE HYDROCHLORIDE. [Suspect]
     Active Substance: LOPERAMIDE HYDROCHLORIDE
     Dosage: 10 MG, BID
     Route: 048
     Dates: start: 201704, end: 20170628

REACTIONS (4)
  - Incorrect drug administration duration [Recovered/Resolved]
  - Drug ineffective [Unknown]
  - Intentional product use issue [Recovered/Resolved]
  - Overdose [Recovered/Resolved]

NARRATIVE: CASE EVENT DATE: 201704
